FAERS Safety Report 15643189 (Version 1)
Quarter: 2018Q4

REPORT INFORMATION
  Report Type: Spontaneous
  Country: US (occurrence: US)
  Receive Date: 20181120
  Receipt Date: 20181120
  Transmission Date: 20190205
  Serious: Yes (Hospitalization)
  Sender: FDA-Public Use
  Company Number: None

PATIENT
  Sex: Female

DRUGS (22)
  1. ENBREL, TOPAMAX [Concomitant]
  2. ESTRADIOL, SMZ/TMP [Concomitant]
  3. FLUDROCORT, SAVELLA [Concomitant]
  4. HYDROCORT, PROGESTERONE [Concomitant]
  5. MONTELUKAST, NEXIUM [Concomitant]
  6. FEROSUL, SINGULAIR [Concomitant]
  7. ALENDRONATE [Concomitant]
     Active Substance: ALENDRONATE SODIUM
  8. AMOX/K CLAV [Concomitant]
     Active Substance: AMOXICILLIN\CLAVULANATE POTASSIUM
  9. FLUOXETINE, ROPINEROLE [Concomitant]
  10. LYRICA, ONDASERON [Concomitant]
  11. LEVOCETIRIZINE, OXYCOD/APAP [Concomitant]
  12. ADVAIR HFA [Concomitant]
     Active Substance: FLUTICASONE PROPIONATE\SALMETEROL XINAFOATE
  13. ESOMEPRAZOLE, SUMAT-NAPROX [Concomitant]
  14. FOLIC ACID, RESTASIS [Concomitant]
  15. HYOSCAMINE, PREMARIN [Concomitant]
  16. HUMIRA [Suspect]
     Active Substance: ADALIMUMAB
     Indication: PRODUCT USED FOR UNKNOWN INDICATION
     Dosage: ?          OTHER FREQUENCY:QW;?
     Route: 058
     Dates: start: 20180520
  17. MOPRHINE, MYBETRIQ [Concomitant]
  18. ARMOUR THYROID [Concomitant]
     Active Substance: THYROID, PORCINE
  19. CELECOXIB, VENTOLIN [Concomitant]
  20. DOK, TRAMADOL [Concomitant]
  21. ACARBOSE. [Concomitant]
     Active Substance: ACARBOSE
  22. AIMOVIG [Concomitant]
     Active Substance: ERENUMAB-AOOE

REACTIONS (2)
  - Surgery [None]
  - Product dose omission [None]
